FAERS Safety Report 23734730 (Version 3)
Quarter: 2024Q2

REPORT INFORMATION
  Report Type: Spontaneous
  Country: US (occurrence: US)
  Receive Date: 20240412
  Receipt Date: 20240513
  Transmission Date: 20240716
  Serious: Yes (Death, Hospitalization, Other)
  Sender: FDA-Public Use
  Company Number: US-GAMIDA CELL LTD.-GC-24US000009

PATIENT

DRUGS (1)
  1. OMISIRGE [Suspect]
     Active Substance: OMIDUBICEL-ONLV
     Indication: B-cell type acute leukaemia
     Dosage: UNK
     Dates: start: 20240306, end: 20240306

REACTIONS (8)
  - Venoocclusive disease [Fatal]
  - Small intestinal obstruction [Fatal]
  - Hepatic necrosis [Fatal]
  - Intestinal ischaemia [Fatal]
  - Septic shock [Fatal]
  - Intestinal perforation [Fatal]
  - Gastrointestinal haemorrhage [Unknown]
  - Hepatic failure [Not Recovered/Not Resolved]

NARRATIVE: CASE EVENT DATE: 20240313
